FAERS Safety Report 20219159 (Version 1)
Quarter: 2021Q4

REPORT INFORMATION
  Report Type: Report from Study
  Country: BR (occurrence: BR)
  Receive Date: 20211222
  Receipt Date: 20211222
  Transmission Date: 20220303
  Serious: Yes (Hospitalization)
  Sender: FDA-Public Use
  Company Number: BR-PFIZER INC-202101690584

PATIENT
  Age: 63 Year
  Sex: Female
  Weight: 34 kg

DRUGS (20)
  1. SUNITINIB MALATE [Suspect]
     Active Substance: SUNITINIB MALATE
     Indication: Renal cell carcinoma
     Dosage: 50 MG, 1X/DAY (50 MG, QD. FLUCTUATED DOSAGE)
     Route: 048
     Dates: start: 20180109, end: 20210916
  2. SUNITINIB MALATE [Suspect]
     Active Substance: SUNITINIB MALATE
     Dosage: 25 MG, 1X/DAY (25 MG, QD, FLUCTUATED DOSAGE)
     Route: 048
     Dates: start: 20211015, end: 20211111
  3. DIPYRONE [Concomitant]
     Active Substance: DIPYRONE
     Dosage: 500 MILLIGRAM
     Dates: start: 20180202
  4. SIMVASTATIN [Concomitant]
     Active Substance: SIMVASTATIN
     Dosage: 20 MILLIGRAM
     Dates: start: 20180427
  5. UREA [Concomitant]
     Active Substance: UREA
     Dosage: 10 %
     Dates: start: 20190516
  6. FUROSEMIDE [Concomitant]
     Active Substance: FUROSEMIDE
     Dosage: 40 MILLIGRAM
     Dates: start: 20200329
  7. BUTYLSCOPOLAMINE BROMIDE [Concomitant]
     Active Substance: BUTYLSCOPOLAMINE BROMIDE
     Dosage: 16.6 MILLIGRAM
     Dates: start: 20200508
  8. AMOXICILLIN\CLAVULANIC ACID [Concomitant]
     Active Substance: AMOXICILLIN\CLAVULANIC ACID
     Dosage: 1750 MILLIGRAM
     Dates: start: 20210120
  9. HYDRALAZINE [Concomitant]
     Active Substance: HYDRALAZINE HYDROCHLORIDE
     Dosage: 75 MILLIGRAM
     Dates: start: 20210727
  10. THIAMINE [Concomitant]
     Active Substance: THIAMINE
     Dosage: 300 MILLIGRAM
     Dates: start: 20210727
  11. AMLODIPINE [Concomitant]
     Active Substance: AMLODIPINE BESYLATE
     Dosage: 10 MILLIGRAM
     Dates: start: 20210727
  12. HYDROCHLOROTHIAZIDE [Concomitant]
     Active Substance: HYDROCHLOROTHIAZIDE
     Dosage: 25 MILLIGRAM
     Dates: start: 20210727
  13. ATENOLOL [Concomitant]
     Active Substance: ATENOLOL
     Dosage: 50 MILLIGRAM
     Dates: start: 20210727
  14. CLONIDINE [Concomitant]
     Active Substance: CLONIDINE
     Dosage: 0.1 MILLIGRAM
     Dates: start: 20210727
  15. ALBUTEROL [Concomitant]
     Active Substance: ALBUTEROL
     Dosage: 100 MICROGRAM
     Dates: start: 20210727
  16. NICOTINE [Concomitant]
     Active Substance: NICOTINE
     Dosage: 21 MILLIGRAM
     Dates: start: 20210727
  17. OMEPRAZOLE [Concomitant]
     Active Substance: OMEPRAZOLE
     Dosage: 20 MILLIGRAM
     Dates: start: 20210727
  18. DEXAMETHASONE [Concomitant]
     Active Substance: DEXAMETHASONE
     Dosage: 8 MILLIGRAM
     Dates: start: 20210727
  19. BETAMETHASONE [Concomitant]
     Active Substance: BETAMETHASONE
     Indication: Palmar-plantar erythrodysaesthesia syndrome
     Dosage: UNK
  20. PURAN [Concomitant]
     Active Substance: LEVOTHYROXINE SODIUM
     Indication: Hypothyroidism
     Dosage: UNK

REACTIONS (1)
  - Chronic obstructive pulmonary disease [Recovered/Resolved]

NARRATIVE: CASE EVENT DATE: 20211120
